FAERS Safety Report 25357704 (Version 2)
Quarter: 2025Q4

REPORT INFORMATION
  Report Type: Spontaneous
  Country: BR (occurrence: BR)
  Receive Date: 20250526
  Receipt Date: 20251001
  Transmission Date: 20260117
  Serious: Yes (Other)
  Sender: ACCORD
  Company Number: BR-MLMSERVICE-20250509-PI502879-00082-1

PATIENT
  Age: 7 Decade
  Sex: Female

DRUGS (8)
  1. CARBOPLATIN [Suspect]
     Active Substance: CARBOPLATIN
     Indication: Endometrial cancer metastatic
     Dosage: COMPLETED SIX CYCLES OF CHEMOTHERAPY
  2. PACLITAXEL [Suspect]
     Active Substance: PACLITAXEL
     Indication: Endometrial cancer metastatic
     Dosage: COMPLETED SIX CYCLES OF CHEMOTHERAPY
  3. PACLITAXEL [Suspect]
     Active Substance: PACLITAXEL
     Indication: Endometrial adenocarcinoma
     Dosage: COMPLETED SIX CYCLES OF CHEMOTHERAPY
  4. CARBOPLATIN [Suspect]
     Active Substance: CARBOPLATIN
     Indication: Metastases to peritoneum
     Dosage: COMPLETED SIX CYCLES OF CHEMOTHERAPY
  5. CARBOPLATIN [Suspect]
     Active Substance: CARBOPLATIN
     Indication: Metastases to lymph nodes
     Dosage: COMPLETED SIX CYCLES OF CHEMOTHERAPY
  6. PACLITAXEL [Suspect]
     Active Substance: PACLITAXEL
     Indication: Metastases to peritoneum
     Dosage: COMPLETED SIX CYCLES OF CHEMOTHERAPY
  7. PACLITAXEL [Suspect]
     Active Substance: PACLITAXEL
     Indication: Metastases to lymph nodes
     Dosage: COMPLETED SIX CYCLES OF CHEMOTHERAPY
  8. CARBOPLATIN [Suspect]
     Active Substance: CARBOPLATIN
     Indication: Endometrial adenocarcinoma
     Dosage: COMPLETED SIX CYCLES OF CHEMOTHERAPY

REACTIONS (3)
  - Deep vein thrombosis [Unknown]
  - Pulmonary embolism [Unknown]
  - Off label use [Unknown]
